FAERS Safety Report 5944279-3 (Version None)
Quarter: 2008Q4

REPORT INFORMATION
  Report Type: 
  Country: None (occurrence: None)
  Receive Date: 20081106
  Receipt Date: 20081029
  Transmission Date: 20090506
  Serious: Yes (Hospitalization)
  Sender: FDA-Public Use
  Company Number: JP-ALLERGAN-0814107US

PATIENT
  Sex: Male

DRUGS (4)
  1. BRIMONIDINE 0.1% SOL W/ PURITE [Suspect]
     Indication: OCULAR HYPERTENSION
     Dosage: UNK, BID
     Route: 047
     Dates: start: 20080314, end: 20081022
  2. XALATAN [Concomitant]
     Indication: GLAUCOMA
     Route: 047
  3. LIVOSTIN [Concomitant]
     Indication: CONJUNCTIVITIS ALLERGIC
     Route: 047
  4. HYALEIN [Concomitant]
     Indication: KERATOCONJUNCTIVITIS SICCA
     Route: 047

REACTIONS (2)
  - ATRIAL FIBRILLATION [None]
  - CONJUNCTIVITIS ALLERGIC [None]
